FAERS Safety Report 15756154 (Version 2)
Quarter: 2019Q1

REPORT INFORMATION
  Report Type: Spontaneous
  Country: HU (occurrence: HU)
  Receive Date: 20181224
  Receipt Date: 20190204
  Transmission Date: 20190417
  Serious: Yes (Other)
  Sender: FDA-Public Use
  Company Number: PHHY2018HU189802

PATIENT
  Age: 26 Year
  Sex: Male

DRUGS (4)
  1. LEVOFLOXACIN. [Suspect]
     Active Substance: LEVOFLOXACIN
     Indication: PHARYNGEAL ULCERATION
     Route: 065
  2. AZITHROMYCIN ANHYDROUS. [Suspect]
     Active Substance: AZITHROMYCIN ANHYDROUS
     Indication: OROPHARYNGEAL PAIN
  3. AZITHROMYCIN ANHYDROUS. [Suspect]
     Active Substance: AZITHROMYCIN ANHYDROUS
     Indication: PHARYNGEAL ULCERATION
     Dosage: UNK
     Route: 065
  4. LEVOFLOXACIN. [Suspect]
     Active Substance: LEVOFLOXACIN
     Indication: OROPHARYNGEAL PAIN

REACTIONS (7)
  - Pharyngeal oedema [Recovered/Resolved]
  - Pharyngeal enanthema [Recovered/Resolved]
  - Drug ineffective [Recovered/Resolved]
  - Syphilis [Recovered/Resolved]
  - Skin plaque [Recovered/Resolved]
  - Macule [Recovered/Resolved]
  - Product use in unapproved indication [Unknown]
